FAERS Safety Report 5655150-9 (Version None)
Quarter: 2008Q1

REPORT INFORMATION
  Report Type: 
  Country: None (occurrence: None)
  Receive Date: 20080219
  Receipt Date: 20071105
  Transmission Date: 20080703
  Serious: No
  Sender: FDA-Public Use
  Company Number: WAES 0711USA00959

PATIENT
  Age: 61 Year
  Sex: Female

DRUGS (4)
  1. JANUVIA [Suspect]
     Dosage: PO
     Route: 048
     Dates: start: 20071001
  2. ALLEGRA [Concomitant]
  3. CRESTOR [Concomitant]
  4. LEXAPRO [Concomitant]

REACTIONS (3)
  - ANGIOEDEMA [None]
  - CHEST DISCOMFORT [None]
  - THROAT IRRITATION [None]
